FAERS Safety Report 21022225 (Version 1)
Quarter: 2022Q2

REPORT INFORMATION
  Report Type: Spontaneous
  Country: US (occurrence: US)
  Receive Date: 20220629
  Receipt Date: 20220629
  Transmission Date: 20220720
  Serious: No
  Sender: FDA-Public Use
  Company Number: US-BRISTOL-MYERS SQUIBB COMPANY-2022-053302

PATIENT
  Age: 76 Year
  Sex: Female

DRUGS (1)
  1. REVLIMID [Suspect]
     Active Substance: LENALIDOMIDE
     Indication: Product used for unknown indication
     Dosage: FREQUENCY- OTHER.
     Route: 048
     Dates: start: 202102

REACTIONS (3)
  - Confusional state [Unknown]
  - Fatigue [Unknown]
  - Incontinence [Unknown]

NARRATIVE: CASE EVENT DATE: 20220303
